FAERS Safety Report 16393257 (Version 1)
Quarter: 2019Q2

REPORT INFORMATION
  Report Type: Report from Study
  Country: BR (occurrence: BR)
  Receive Date: 20190605
  Receipt Date: 20190605
  Transmission Date: 20190711
  Serious: Yes (Hospitalization, Other)
  Sender: FDA-Public Use
  Company Number: BR-SA-2019SA150937

PATIENT
  Age: 42 Year
  Sex: Male
  Weight: 71 kg

DRUGS (1)
  1. AGALSIDASE BETA [Suspect]
     Active Substance: AGALSIDASE BETA
     Indication: FABRY^S DISEASE
     Dosage: 2 DF, QOW
     Route: 041
     Dates: start: 20190402

REACTIONS (2)
  - Adverse reaction [Recovered/Resolved]
  - End stage renal disease [Recovered/Resolved]

NARRATIVE: CASE EVENT DATE: 20190430
